FAERS Safety Report 5815728-6 (Version None)
Quarter: 2008Q3

REPORT INFORMATION
  Report Type: 
  Country: None (occurrence: None)
  Receive Date: 20080717
  Receipt Date: 20080717
  Transmission Date: 20090109
  Serious: No
  Sender: FDA-Public Use
  Company Number: None

PATIENT
  Age: 9 Year
  Sex: Male
  Weight: 31.2982 kg

DRUGS (1)
  1. RITE AID JR STRENGTH 160 MG RITE AID ACETAMINOPHEN [Suspect]
     Indication: PYREXIA
     Dosage: 2 1/2 TABLETS EVERY 4 HOURS PO
     Route: 048
     Dates: start: 20080716, end: 20080716

REACTIONS (2)
  - INCORRECT DOSE ADMINISTERED [None]
  - PHARMACEUTICAL PRODUCT COMPLAINT [None]
